FAERS Safety Report 9795513 (Version 2)
Quarter: 2014Q1

REPORT INFORMATION
  Report Type: Spontaneous
  Country: MX (occurrence: MX)
  Receive Date: 20140103
  Receipt Date: 20140311
  Transmission Date: 20141002
  Serious: Yes (Other)
  Sender: FDA-Public Use
  Company Number: MX-JNJFOC-20131217251

PATIENT
  Age: 47 Year
  Sex: Female

DRUGS (7)
  1. REMICADE [Suspect]
     Indication: COLITIS ULCERATIVE
     Dosage: 1ST INFUSION
     Route: 042
     Dates: start: 20131209
  2. METRONIDAZOLE [Concomitant]
     Indication: COLITIS ULCERATIVE
     Route: 065
  3. METRONIDAZOLE [Concomitant]
     Indication: COLITIS ULCERATIVE
     Route: 065
  4. HYDROCORTISONE [Concomitant]
     Indication: PREMEDICATION
     Route: 042
     Dates: start: 20131209
  5. IMURAN [Concomitant]
     Indication: COLITIS ULCERATIVE
     Route: 048
  6. METICORTEN [Concomitant]
     Indication: COLITIS ULCERATIVE
     Route: 048
  7. SALOFALK [Concomitant]
     Route: 065

REACTIONS (3)
  - Muscular weakness [Recovered/Resolved]
  - Paraesthesia [Recovered/Resolved]
  - Hypoaesthesia [Recovered/Resolved]
